FAERS Safety Report 6141723-6 (Version None)
Quarter: 2009Q1

REPORT INFORMATION
  Report Type: 
  Country: None (occurrence: None)
  Receive Date: 20090331
  Receipt Date: 20090331
  Transmission Date: 20090719
  Serious: Yes (Hospitalization)
  Sender: FDA-Public Use
  Company Number: None

PATIENT
  Age: 32 Year
  Sex: Male

DRUGS (1)
  1. CHANTIX [Suspect]
     Indication: SMOKING CESSATION THERAPY
     Dosage: PO
     Route: 048
     Dates: start: 20081223, end: 20090206

REACTIONS (10)
  - ABNORMAL BEHAVIOUR [None]
  - AGGRESSION [None]
  - AGITATION [None]
  - ANGER [None]
  - ANXIETY [None]
  - HEADACHE [None]
  - HOMICIDAL IDEATION [None]
  - ILL-DEFINED DISORDER [None]
  - IMPAIRED WORK ABILITY [None]
  - SELF-MEDICATION [None]
